FAERS Safety Report 8363920-1 (Version None)
Quarter: 2012Q2

REPORT INFORMATION
  Report Type: 
  Country: None (occurrence: None)
  Receive Date: 20120516
  Receipt Date: 20120201
  Transmission Date: 20120825
  Serious: No
  Sender: FDA-Public Use
  Company Number: US-ALEXION-A201200178

PATIENT
  Sex: Male

DRUGS (6)
  1. CYCLOSPORINE [Concomitant]
     Indication: APLASTIC ANAEMIA
     Dosage: 300 MG ALTERNATING WITH 200 MG QD
  2. SOLIRIS [Suspect]
     Indication: PAROXYSMAL NOCTURNAL HAEMOGLOBINURIA
     Dosage: UNK
     Route: 042
     Dates: start: 20110701
  3. SIROLIMUS [Concomitant]
     Indication: APLASTIC ANAEMIA
     Dosage: 2 MG, QD
  4. SOLIRIS [Suspect]
     Dosage: UNK, Q2W
     Route: 042
  5. EXJADE [Concomitant]
     Indication: SERUM FERRITIN INCREASED
     Dosage: 1000 MG, QD
  6. CELLCEPT [Concomitant]
     Indication: APLASTIC ANAEMIA
     Dosage: 500 MG, BID

REACTIONS (1)
  - HAEMOGLOBIN DECREASED [None]
